FAERS Safety Report 13788504 (Version 1)
Quarter: 2017Q3

REPORT INFORMATION
  Report Type: Spontaneous
  Country: FR (occurrence: FR)
  Receive Date: 20170725
  Receipt Date: 20170725
  Transmission Date: 20171127
  Serious: Yes (Hospitalization)
  Sender: FDA-Public Use
  Company Number: FR-009507513-1707FRA009664

PATIENT
  Age: 43 Year
  Sex: Male

DRUGS (13)
  1. NEORAL [Suspect]
     Active Substance: CYCLOSPORINE
     Indication: PROPHYLAXIS AGAINST TRANSPLANT REJECTION
     Dosage: 40 MG, BID
     Dates: start: 2017
  2. SPASFON (PHLOROGLUCINOL, TRIMETHYLPHLOROGLUCINOL) [Suspect]
     Active Substance: PHLOROGLUCINOL\1,3,5-TRIMETHOXYBENZENE
     Indication: ABDOMINAL PAIN
     Dosage: 2 DF, TID
     Route: 048
     Dates: start: 2017
  3. ACETAMINOPHEN. [Suspect]
     Active Substance: ACETAMINOPHEN
     Indication: PAIN
     Dosage: 100 MG, TID
     Route: 048
     Dates: start: 2017
  4. ACETAMINOPHEN. [Suspect]
     Active Substance: ACETAMINOPHEN
     Indication: PYREXIA
  5. HYDROCORTISONE. [Suspect]
     Active Substance: HYDROCORTISONE
  6. CELLCEPT [Suspect]
     Active Substance: MYCOPHENOLATE MOFETIL\MYCOPHENOLATE MOFETIL HYDROCHLORIDE
     Indication: PROPHYLAXIS AGAINST TRANSPLANT REJECTION
     Dosage: 1000 MG, BID
     Route: 048
     Dates: start: 2017
  7. EUPANTOL [Suspect]
     Active Substance: PANTOPRAZOLE SODIUM
     Indication: GASTROOESOPHAGEAL REFLUX DISEASE
     Dosage: 40 MG, QD
     Route: 048
     Dates: start: 2017
  8. SMOFKABIVEN [Suspect]
     Active Substance: AMINO ACIDS\DEXTROSE\ELECTROLYTES NOS\SOYBEAN OIL
     Indication: PARENTERAL NUTRITION
     Dosage: 80 ML, QH, EMULSION FOR INFUSION
     Route: 042
     Dates: start: 2017
  9. SOLU-MEDROL [Suspect]
     Active Substance: METHYLPREDNISOLONE SODIUM SUCCINATE
     Indication: PRODUCT USED FOR UNKNOWN INDICATION
     Dosage: 160 MG, QD
     Route: 042
     Dates: start: 2017, end: 20170609
  10. ACUPAN [Suspect]
     Active Substance: NEFOPAM HYDROCHLORIDE
     Indication: PAIN
     Dosage: 20 MG, Q6H, PRN
     Route: 042
     Dates: start: 2017
  11. GAVISCON (ALGINIC ACID (+) SODIUM BICARBONATE) [Suspect]
     Active Substance: SODIUM ALGINATE\SODIUM BICARBONATE
     Indication: GASTROOESOPHAGEAL REFLUX DISEASE
     Dosage: 1 DF, TID, PRN
     Route: 048
     Dates: start: 2017
  12. TIORFAN [Suspect]
     Active Substance: RACECADOTRIL
     Indication: DIARRHOEA
     Dosage: 100 MG, TID
     Route: 048
     Dates: start: 2017
  13. CANCIDAS [Suspect]
     Active Substance: CASPOFUNGIN ACETATE
     Indication: FUNGAL INFECTION
     Dosage: 70 MG, QD, ALSO REPORTED AS 70MG POWDER FOR SOLUTION FOR INFUSION
     Route: 042
     Dates: start: 2017

REACTIONS (1)
  - Pancytopenia [Not Recovered/Not Resolved]

NARRATIVE: CASE EVENT DATE: 201704
